FAERS Safety Report 4912920-X (Version None)
Quarter: 2006Q1

REPORT INFORMATION
  Report Type: 
  Country: None (occurrence: None)
  Receive Date: 20060215
  Receipt Date: 20050331
  Transmission Date: 20060701
  Serious: Yes (Hospitalization)
  Sender: FDA-Public Use
  Company Number: JP-BRISTOL-MYERS SQUIBB COMPANY-12963849

PATIENT
  Age: 70 Year
  Sex: Female
  Weight: 55 kg

DRUGS (11)
  1. UFT [Suspect]
     Indication: RECTAL CANCER
     Dosage: 4 CAPS/DAY 13-APR-05 TO 6-MAY-05
     Route: 048
     Dates: start: 20041218, end: 20050301
  2. LEUCOVORIN [Suspect]
     Indication: RECTAL CANCER
     Dosage: 75 MG DAILY FROM 13-APR-2005 TO 6-MAY-2005
     Route: 048
     Dates: start: 20041218, end: 20050301
  3. BERIZYM [Concomitant]
     Route: 048
     Dates: start: 20041218
  4. KOLANTYL [Concomitant]
     Route: 048
     Dates: start: 20041218
  5. BIOFERMIN [Concomitant]
     Route: 048
     Dates: start: 20041218
  6. MAGNESIUM OXIDE [Concomitant]
     Route: 048
     Dates: start: 20041218
  7. THYRADIN S [Concomitant]
     Route: 048
     Dates: start: 20041218
  8. CALCIUM CARBONATE [Concomitant]
     Route: 048
     Dates: start: 20041218
  9. NORVASC [Concomitant]
     Route: 048
     Dates: start: 20041218
  10. DEPAS [Concomitant]
     Route: 048
     Dates: start: 20041218
  11. LOCHOL [Concomitant]
     Route: 048
     Dates: start: 20041218

REACTIONS (6)
  - ANOREXIA [None]
  - DIARRHOEA [None]
  - INTESTINAL ISCHAEMIA [None]
  - MELAENA [None]
  - VERTIGO [None]
  - VOMITING [None]
